FAERS Safety Report 6167442-8 (Version None)
Quarter: 2009Q2

REPORT INFORMATION
  Report Type: 
  Country: None (occurrence: None)
  Receive Date: 20090424
  Receipt Date: 20090417
  Transmission Date: 20091009
  Serious: Yes (Other)
  Sender: FDA-Public Use
  Company Number: PHEH2009US01634

PATIENT
  Sex: Male
  Weight: 86.168 kg

DRUGS (26)
  1. ZOMETA [Suspect]
     Indication: METASTASES TO BONE
     Dosage: 4MG, TIW
     Route: 042
     Dates: start: 20041001
  2. VITAMIN D [Concomitant]
  3. CALCIUM [Concomitant]
  4. ARANESP [Concomitant]
  5. MITOXANTRONE [Concomitant]
     Indication: PROSTATE CANCER METASTATIC
     Dosage: 25 MG, Q28 DAYS
     Route: 042
     Dates: start: 20080220, end: 20090109
  6. VIVELLE [Concomitant]
     Dosage: UNK
     Dates: start: 20070604, end: 20080220
  7. TAXOTERE [Concomitant]
     Dosage: UNK
     Dates: start: 20090313
  8. DEXAMETHASONE [Concomitant]
  9. GRANISETRON HYDROCHLORIDE [Concomitant]
  10. APREPITANT [Concomitant]
  11. ATIVAN [Concomitant]
  12. CELEBREX [Concomitant]
  13. COMPAZINE [Concomitant]
  14. HYDROCORTISONE [Concomitant]
  15. KETOCONAZOLE [Concomitant]
  16. LEUKINE [Concomitant]
  17. NASONEX [Concomitant]
     Dosage: UNK
  18. PERCOCET [Concomitant]
  19. PREDNISONE [Concomitant]
  20. TRIAMTERENE AND HYDROCHLOROTHIAZIDE [Concomitant]
  21. LUPRON [Concomitant]
  22. LORAZEPAM [Concomitant]
  23. PROCHLORPERAZINE MALEATE [Concomitant]
  24. CASODEX [Concomitant]
  25. CALCITRIOL [Concomitant]
  26. DIPHENHYDRAMINE HYDROCHLORIDE [Concomitant]

REACTIONS (14)
  - BONE DISORDER [None]
  - ERYTHEMA [None]
  - GINGIVAL INFECTION [None]
  - LYMPH NODE PAIN [None]
  - LYMPHADENOPATHY [None]
  - OSTEONECROSIS [None]
  - PAIN IN JAW [None]
  - PRIMARY SEQUESTRUM [None]
  - SOFT TISSUE INFECTION [None]
  - SWELLING [None]
  - TOOTH ABSCESS [None]
  - TOOTH DEPOSIT [None]
  - TOOTH EXTRACTION [None]
  - TOOTHACHE [None]
